FAERS Safety Report 19036445 (Version 1)
Quarter: 2021Q1

REPORT INFORMATION
  Report Type: Spontaneous
  Country: US (occurrence: US)
  Receive Date: 20210319
  Receipt Date: 20210319
  Transmission Date: 20210420
  Serious: Yes (Hospitalization, Disabling)
  Sender: FDA-Public Use
  Company Number: None

PATIENT
  Age: 41 Year
  Sex: Female
  Weight: 69.4 kg

DRUGS (1)
  1. MIRENA [Suspect]
     Active Substance: LEVONORGESTREL

REACTIONS (8)
  - Feeling abnormal [None]
  - Hypoaesthesia [None]
  - Palpitations [None]
  - Head discomfort [None]
  - Anxiety [None]
  - Vision blurred [None]
  - Paraesthesia [None]
  - Arthralgia [None]

NARRATIVE: CASE EVENT DATE: 20190525
